FAERS Safety Report 9678756 (Version 2)
Quarter: 2013Q4

REPORT INFORMATION
  Report Type: Report from Study
  Country: US (occurrence: US)
  Receive Date: 20131108
  Receipt Date: 20131108
  Transmission Date: 20140711
  Serious: Yes (Hospitalization)
  Sender: FDA-Public Use
  Company Number: US-PFIZER INC-US-WYE-H12457809

PATIENT
  Age: 35 Year
  Sex: Male
  Weight: 78.9 kg

DRUGS (13)
  1. SIROLIMUS [Suspect]
     Indication: PROPHYLAXIS AGAINST TRANSPLANT REJECTION
     Dosage: 2.0 MG, 1X/DAY
     Route: 065
     Dates: start: 20091112, end: 20091126
  2. SIROLIMUS [Suspect]
     Dosage: 1 MG ON MON,WED, FRI AND 2 MG ON TUES,THURS,SAT, SUN
     Route: 048
     Dates: start: 20091127
  3. RAMIPRIL [Suspect]
     Indication: PROTEINURIA
     Dosage: 5.0 MG, 1X/DAY
     Route: 048
     Dates: start: 20091008
  4. DOCUSATE SODIUM [Concomitant]
     Dosage: UNK
     Route: 065
     Dates: start: 20090622
  5. EPINEPHRINE [Concomitant]
     Dosage: UNK
     Route: 065
     Dates: start: 20090410
  6. METOPROLOL TARTRATE [Concomitant]
     Dosage: UNK
  7. CELLCEPT [Concomitant]
     Dosage: UNK
     Route: 065
     Dates: start: 20091122
  8. ONDANSETRON [Concomitant]
     Dosage: UNK
     Route: 065
     Dates: start: 20090410
  9. PERCOCET [Concomitant]
     Dosage: UNK
     Route: 065
     Dates: start: 20091021
  10. SODIUM POLYSTYRENE SULFONATE [Concomitant]
     Dosage: UNK
     Route: 065
     Dates: start: 20090410
  11. BACTRIM [Concomitant]
     Dosage: UNK
     Route: 065
     Dates: start: 20090620
  12. TRAZODONE [Concomitant]
     Dosage: UNK
     Route: 065
     Dates: start: 20091113
  13. AMBIEN [Concomitant]
     Dosage: UNK
     Route: 065
     Dates: start: 20090410

REACTIONS (1)
  - Vomiting [Recovered/Resolved]
